FAERS Safety Report 14596434 (Version 1)
Quarter: 2018Q1

REPORT INFORMATION
  Report Type: Report from Study
  Country: PA (occurrence: PA)
  Receive Date: 20180303
  Receipt Date: 20180303
  Transmission Date: 20180509
  Serious: Yes (Hospitalization)
  Sender: FDA-Public Use
  Company Number: PHHY2015PA138233

PATIENT
  Age: 17 Year
  Sex: Male

DRUGS (4)
  1. HYDROXYUREA. [Concomitant]
     Active Substance: HYDROXYUREA
     Indication: PRODUCT USED FOR UNKNOWN INDICATION
     Route: 065
  2. FOLIC ACID. [Concomitant]
     Active Substance: FOLIC ACID
     Indication: PRODUCT USED FOR UNKNOWN INDICATION
     Route: 065
  3. ASPIRIN. [Concomitant]
     Active Substance: ASPIRIN
     Indication: PRODUCT USED FOR UNKNOWN INDICATION
     Dosage: UNK UKN, QHS
     Route: 065
  4. EXJADE [Suspect]
     Active Substance: DEFERASIROX
     Indication: PRODUCT USED FOR UNKNOWN INDICATION
     Route: 048

REACTIONS (3)
  - Haemoglobin decreased [Unknown]
  - Serum ferritin increased [Unknown]
  - Pain in extremity [Recovering/Resolving]
